FAERS Safety Report 21743938 (Version 1)
Quarter: 2022Q4

REPORT INFORMATION
  Report Type: Spontaneous
  Country: ES (occurrence: ES)
  Receive Date: 20221217
  Receipt Date: 20221217
  Transmission Date: 20230112
  Serious: Yes (Other)
  Sender: FDA-Public Use
  Company Number: None

PATIENT
  Age: 68 Year
  Sex: Female

DRUGS (7)
  1. BISOPROLOL [Suspect]
     Active Substance: BISOPROLOL
     Indication: Atrial fibrillation
     Dosage: 1.25 MG C/24 H (20 TABLETS)
     Route: 048
     Dates: start: 20220928
  2. ELIQUIS [Concomitant]
     Active Substance: APIXABAN
     Indication: Atrial fibrillation
     Dosage: 2.5 MG C/12 H (60 TABLETS)
     Route: 048
     Dates: start: 20220927
  3. TIMOLOL MALEATE [Concomitant]
     Active Substance: TIMOLOL MALEATE
     Indication: Glaucoma
     Dosage: 2.0 GTS C/12 H (1 FRASCO DE 5 ML)
     Dates: start: 20200313
  4. SPIRIVA [Concomitant]
     Active Substance: TIOTROPIUM BROMIDE MONOHYDRATE
     Indication: Coronavirus pneumonia
     Dosage: 2.0 PUFF C/24 H (SOLUTION FOR INHALATION) (1 INHALADOR RECARGABLE + 1 CARTUCHO DE 60 PULSACIONES (30
     Dates: start: 20220921
  5. OMEPRAZOL TARBIS [Concomitant]
     Indication: Pharyngeal cancer
     Dosage: 20 MG (A-DE) 56 CAPSULES
     Route: 048
     Dates: start: 20220428
  6. LEVOTHYROXINE SODIUM [Concomitant]
     Active Substance: LEVOTHYROXINE SODIUM
     Indication: Hypothyroidism
     Dosage: 50 UG A-DE (100 TABLETS)
     Route: 048
     Dates: start: 20220921
  7. LORAZEPAM [Concomitant]
     Active Substance: LORAZEPAM
     Indication: Neuralgia
     Dosage: 2.0 MG (C/24 H NOC) (50 TABLETS)
     Route: 048
     Dates: start: 20151022

REACTIONS (1)
  - Urticaria [Unknown]

NARRATIVE: CASE EVENT DATE: 20221010
